FAERS Safety Report 9417134 (Version 2)
Quarter: 2013Q3

REPORT INFORMATION
  Report Type: Spontaneous
  Country: FR (occurrence: FR)
  Receive Date: 20130722
  Receipt Date: 20130903
  Transmission Date: 20140515
  Serious: Yes (Hospitalization)
  Sender: FDA-Public Use
  Company Number: NGX_01600_2013

PATIENT
  Age: 40 Year
  Sex: Female

DRUGS (4)
  1. QUTENZA (CAPSAICIN) PATCH 179 MG [Suspect]
     Indication: NEURALGIA
     Route: 061
     Dates: start: 20130129, end: 20130129
  2. AMITRIPTYLINE [Concomitant]
  3. OXYCODONE [Concomitant]
  4. EMLA [Concomitant]

REACTIONS (2)
  - Intestinal obstruction [None]
  - Postoperative adhesion [None]
